FAERS Safety Report 17306009 (Version 1)
Quarter: 2020Q1

REPORT INFORMATION
  Report Type: Spontaneous
  Country: US (occurrence: US)
  Receive Date: 20200106
  Receipt Date: 20200106
  Transmission Date: 20200409
  Serious: No
  Sender: FDA-Public Use
  Company Number: None

PATIENT
  Age: 45 Year
  Sex: Male
  Weight: 107 kg

DRUGS (1)
  1. ATORVASTATIN (ATORVASTATIN CA 80MG TAB) [Suspect]
     Active Substance: ATORVASTATIN
     Indication: HYPERLIPIDAEMIA
     Route: 048
     Dates: start: 20190515, end: 20190519

REACTIONS (5)
  - Liver injury [None]
  - Hepatic steatosis [None]
  - Transaminases increased [None]
  - Cholelithiasis [None]
  - Abdominal pain [None]

NARRATIVE: CASE EVENT DATE: 20190520
